FAERS Safety Report 8791544 (Version 1)
Quarter: 2012Q4

REPORT INFORMATION
  Report Type: 
  Country: FR (occurrence: None)
  Receive Date: 20120912
  Receipt Date: 20120912
  Transmission Date: 20130627
  Serious: Yes (Hospitalization, Other)
  Sender: FDA-Public Use
  Company Number: 2012MA010697

PATIENT
  Age: 88 Year
  Sex: Female

DRUGS (1)
  1. MICONAZOLE NITRATE [Suspect]
     Indication: LOCAL ANTIFUNGAL TREATMENT

REACTIONS (9)
  - Serotonin syndrome [None]
  - Drug interaction [None]
  - Somnolence [None]
  - Confusional state [None]
  - Hypertonia [None]
  - Tremor [None]
  - Tachycardia [None]
  - Hypertension [None]
  - Hyponatraemia [None]
